FAERS Safety Report 9642092 (Version 2)
Quarter: 2013Q4

REPORT INFORMATION
  Report Type: Report from Study
  Country: CA (occurrence: CA)
  Receive Date: 20131023
  Receipt Date: 20131023
  Transmission Date: 20140711
  Serious: Yes (Death, Other)
  Sender: FDA-Public Use
  Company Number: CA-ROCHE-1282551

PATIENT
  Age: 35 Year
  Sex: Female
  Weight: 75.3 kg

DRUGS (3)
  1. XELODA [Suspect]
     Indication: ADRENAL GLAND CANCER METASTATIC
     Route: 048
     Dates: start: 201308, end: 20130926
  2. GEMCITABINE [Suspect]
     Indication: METASTATIC NEOPLASM
     Route: 065
     Dates: start: 201308
  3. MITOTANE [Concomitant]

REACTIONS (2)
  - Death [Fatal]
  - Platelet count decreased [Unknown]
